FAERS Safety Report 7713409-5 (Version None)
Quarter: 2011Q3

REPORT INFORMATION
  Report Type: 
  Country: None (occurrence: None)
  Receive Date: 20110826
  Receipt Date: 20110816
  Transmission Date: 20111222
  Serious: Yes (Other)
  Sender: FDA-Public Use
  Company Number: JP-BRISTOL-MYERS SQUIBB COMPANY-15983000

PATIENT
  Age: 68 Year
  Sex: Female

DRUGS (2)
  1. ERBITUX [Suspect]
     Indication: COLORECTAL CANCER METASTATIC
     Dosage: STOPPED. 5 CYCLE.
     Route: 042
     Dates: start: 20091201
  2. IRINOTECAN HCL [Concomitant]
     Indication: COLORECTAL CANCER METASTATIC
     Dosage: 5 CYCLE.
     Dates: start: 20091201

REACTIONS (5)
  - ALOPECIA [None]
  - TRICHOMEGALY [None]
  - KERATITIS [None]
  - NAIL BED INFLAMMATION [None]
  - XEROSIS [None]
